FAERS Safety Report 4732416-8 (Version None)
Quarter: 2005Q3

REPORT INFORMATION
  Report Type: 
  Country: None (occurrence: None)
  Receive Date: 20050801
  Receipt Date: 20050718
  Transmission Date: 20060218
  Serious: Yes (Hospitalization, Other)
  Sender: FDA-Public Use
  Company Number: 2005103563

PATIENT
  Age: 86 Year
  Sex: Female

DRUGS (2)
  1. SERTRALINE (SERTRALINE) [Suspect]
     Indication: ILL-DEFINED DISORDER
     Dosage: 150 MG (1 IN 1 D)
  2. OXYCODONE (OXYCODONE) [Suspect]
     Indication: ILL-DEFINED DISORDER
     Dosage: 20 MG (10 MG, 2 IN 1 D)

REACTIONS (8)
  - AGITATION [None]
  - COORDINATION ABNORMAL [None]
  - FALL [None]
  - FRACTURED SACRUM [None]
  - HYPERTONIA [None]
  - MYOCLONUS [None]
  - SEROTONIN SYNDROME [None]
  - TREMOR [None]
